FAERS Safety Report 17313333 (Version 1)
Quarter: 2020Q1

REPORT INFORMATION
  Report Type: Spontaneous
  Country: US (occurrence: US)
  Receive Date: 20200124
  Receipt Date: 20200124
  Transmission Date: 20200409
  Serious: No
  Sender: FDA-Public Use
  Company Number: US-CURIUM-200100134

PATIENT
  Age: 40 Year
  Sex: Female

DRUGS (1)
  1. TECHNESCAN PYP [Suspect]
     Active Substance: TECHNETIUM TC-99M PYROPHOSPHATE
     Dosage: NUMBER OF SEPARATE DOSAGES: 1

REACTIONS (3)
  - Hyperhidrosis [Recovered/Resolved]
  - Feeling hot [Recovered/Resolved]
  - Burning sensation [Recovered/Resolved]
